FAERS Safety Report 18378436 (Version 1)
Quarter: 2020Q4

REPORT INFORMATION
  Report Type: Report from Study
  Country: MX (occurrence: MX)
  Receive Date: 20201013
  Receipt Date: 20201013
  Transmission Date: 20210114
  Serious: Yes (Other)
  Sender: FDA-Public Use
  Company Number: MX-ASTRAZENECA-2020SF30979

PATIENT
  Age: 58 Year
  Sex: Female
  Weight: 55.8 kg

DRUGS (3)
  1. CALTRATE WITH VITAMIN D [Concomitant]
     Active Substance: CALCIUM CARBONATE\CHOLECALCIFEROL
     Dosage: 1 A DAY
  2. IRESSA [Suspect]
     Active Substance: GEFITINIB
     Indication: LUNG NEOPLASM MALIGNANT
     Route: 048
     Dates: start: 20200501
  3. EXJADE [Concomitant]
     Active Substance: DEFERASIROX

REACTIONS (1)
  - Acquired gene mutation [Unknown]
